FAERS Safety Report 6871429-7 (Version None)
Quarter: 2010Q3

REPORT INFORMATION
  Report Type: 
  Country: None (occurrence: None)
  Receive Date: 20100723
  Receipt Date: 20100717
  Transmission Date: 20110219
  Serious: Yes (Other)
  Sender: FDA-Public Use
  Company Number: US-SANOFI-AVENTIS-2010SA041951

PATIENT
  Sex: Male

DRUGS (2)
  1. LANTUS [Suspect]
     Dosage: DOSE:80 UNIT(S)
     Route: 058
  2. OPTICLICK [Suspect]

REACTIONS (2)
  - BLOOD GLUCOSE FLUCTUATION [None]
  - CARDIAC FIBRILLATION [None]
